FAERS Safety Report 21064627 (Version 2)
Quarter: 2022Q3

REPORT INFORMATION
  Report Type: Report from Study
  Country: DE (occurrence: DE)
  Receive Date: 20220711
  Receipt Date: 20220804
  Transmission Date: 20221027
  Serious: Yes (Hospitalization)
  Sender: FDA-Public Use
  Company Number: DE-PFIZER INC-2020211268

PATIENT
  Age: 50 Year
  Sex: Male
  Weight: 103.2 kg

DRUGS (7)
  1. ABROCITINIB [Suspect]
     Active Substance: ABROCITINIB
     Indication: Dermatitis atopic
     Dosage: 200 MG, DAILY
     Route: 048
     Dates: start: 20190905, end: 20200528
  2. FENOTEROL HYDROBROMIDE\IPRATROPIUM BROMIDE [Concomitant]
     Active Substance: FENOTEROL HYDROBROMIDE\IPRATROPIUM BROMIDE
     Indication: Asthma
     Dosage: 1 PUFF, AS NEEDED
     Route: 055
     Dates: start: 1972
  3. BEROTEC [Concomitant]
     Active Substance: FENOTEROL HYDROBROMIDE
     Indication: Asthma
     Dosage: 1 PUFF, AS NEEDED
     Route: 055
     Dates: start: 1972
  4. FEXOFENADINE HYDROCHLORIDE [Concomitant]
     Active Substance: FEXOFENADINE HYDROCHLORIDE
     Indication: Rhinitis allergic
     Dosage: 180 MG, 1X/DAY
     Route: 048
     Dates: start: 20190509
  5. DERMATOP [Concomitant]
     Active Substance: PREDNICARBATE
     Indication: Therapeutic skin care topical
     Dosage: (BASIC CREME) 1 APPL, 1X/DAY
     Route: 061
     Dates: start: 201811
  6. EBASTINE [Concomitant]
     Active Substance: EBASTINE
     Dosage: 10 MG, 1X/DAY
     Route: 048
     Dates: start: 20190509
  7. CLOBETASOL [Concomitant]
     Active Substance: CLOBETASOL
     Dosage: UNK UNK, 1X/DAY
     Route: 061
     Dates: start: 20191001

REACTIONS (1)
  - Eczema herpeticum [Recovered/Resolved]

NARRATIVE: CASE EVENT DATE: 20200524
